FAERS Safety Report 9703684 (Version 2)
Quarter: 2014Q2

REPORT INFORMATION
  Report Type: Spontaneous
  Country: US (occurrence: US)
  Receive Date: 20131122
  Receipt Date: 20140528
  Transmission Date: 20141212
  Serious: No
  Sender: FDA-Public Use
  Company Number: US-PFIZER INC-2013330477

PATIENT
  Age: 70 Year
  Sex: Female

DRUGS (2)
  1. XALKORI [Suspect]
     Indication: TRACHEAL CANCER
     Dosage: 250 MG, 2X/DAY
  2. XALKORI [Suspect]
     Dosage: 250 MG, DAILY
     Dates: start: 20131015

REACTIONS (8)
  - Off label use [Unknown]
  - Nausea [Unknown]
  - Headache [Unknown]
  - Diarrhoea [Unknown]
  - Visual impairment [Unknown]
  - Oedema peripheral [Unknown]
  - Disease progression [Unknown]
  - Tracheal cancer [Unknown]
